FAERS Safety Report 10682318 (Version 4)
Quarter: 2015Q1

REPORT INFORMATION
  Report Type: Report from Study
  Country: FR (occurrence: FR)
  Receive Date: 20141230
  Receipt Date: 20150312
  Transmission Date: 20150720
  Serious: Yes (Other)
  Sender: FDA-Public Use
  Company Number: FR-009507513-1412FRA010471

PATIENT
  Age: 79 Year
  Sex: Male
  Weight: 76 kg

DRUGS (4)
  1. PEMBROLIZUMAB. [Suspect]
     Active Substance: PEMBROLIZUMAB
     Dosage: 10 MG/KG, Q3W
     Route: 042
     Dates: start: 20141121, end: 20141121
  2. PEMBROLIZUMAB. [Suspect]
     Active Substance: PEMBROLIZUMAB
     Indication: MALIGNANT MELANOMA
     Dosage: 10 MG/KG, Q3W
     Route: 042
     Dates: start: 20140110, end: 20141031
  3. INFLUENZA VIRUS VACCINE (UNSPECIFIED) [Concomitant]
     Active Substance: INFLUENZA VIRUS VACCINE
     Indication: INFLUENZA IMMUNISATION
     Dosage: 1 DF, QM
     Dates: start: 20141101
  4. DEXERYL CREAM [Concomitant]
     Active Substance: GLYCERIN\PARAFFIN
     Indication: XEROSIS
     Dosage: 1 APPLICATION, QD
     Route: 061
     Dates: start: 20140919

REACTIONS (1)
  - Arterial thrombosis [Not Recovered/Not Resolved]

NARRATIVE: CASE EVENT DATE: 20141205
